FAERS Safety Report 5692882-0 (Version None)
Quarter: 2008Q2

REPORT INFORMATION
  Report Type: 
  Country: None (occurrence: None)
  Receive Date: 20080326
  Receipt Date: 20071226
  Transmission Date: 20081010
  Serious: No
  Sender: FDA-Public Use
  Company Number: US-CVT-070193

PATIENT
  Age: 70 Year
  Sex: Male

DRUGS (10)
  1. RANEXA [Suspect]
     Indication: ANGINA PECTORIS
     Dosage: 500 MG, BID, ORAL
     Route: 048
     Dates: start: 20071205, end: 20071221
  2. PLAVIX [Concomitant]
  3. ASPIRIN [Concomitant]
  4. NORVASC/00972401/ (AMLODIPINE) [Concomitant]
  5. DIOVAN HCT [Concomitant]
  6. COREG [Concomitant]
  7. CRESTOR [Concomitant]
  8. FOLIC ACID [Concomitant]
  9. TOPAMAX (TOPIRIMATE) [Concomitant]
  10. DEPAKOTE [Concomitant]

REACTIONS (3)
  - EPISTAXIS [None]
  - HEADACHE [None]
  - HYPERTENSION [None]
